FAERS Safety Report 6607105-5 (Version None)
Quarter: 2010Q1

REPORT INFORMATION
  Report Type: 
  Country: None (occurrence: None)
  Receive Date: 20100219
  Receipt Date: 20100204
  Transmission Date: 20100710
  Serious: Yes (Hospitalization)
  Sender: FDA-Public Use
  Company Number: AMAG201000076

PATIENT
  Age: 69 Year
  Sex: Female
  Weight: 77.1 kg

DRUGS (9)
  1. FERAHEME [Suspect]
     Indication: IRON DEFICIENCY ANAEMIA
     Dosage: 510 MG, SINGLE, INTRAVENOUS; 255 MG, SINGLE, INTRAVENOUS
     Route: 042
     Dates: start: 20100125, end: 20100125
  2. FERAHEME [Suspect]
     Indication: RENAL FAILURE
     Dosage: 510 MG, SINGLE, INTRAVENOUS; 255 MG, SINGLE, INTRAVENOUS
     Route: 042
     Dates: start: 20100125, end: 20100125
  3. FERAHEME [Suspect]
     Indication: IRON DEFICIENCY ANAEMIA
     Dosage: 510 MG, SINGLE, INTRAVENOUS; 255 MG, SINGLE, INTRAVENOUS
     Route: 042
     Dates: start: 20100203, end: 20100203
  4. FERAHEME [Suspect]
     Indication: RENAL FAILURE
     Dosage: 510 MG, SINGLE, INTRAVENOUS; 255 MG, SINGLE, INTRAVENOUS
     Route: 042
     Dates: start: 20100203, end: 20100203
  5. ASPIRIN [Concomitant]
  6. AMLODIPINE [Concomitant]
  7. FUROSEMIDE (FUROSEMIDE SODIUM) [Concomitant]
  8. FERROUS FUMARATE [Concomitant]
  9. ZOLPIDEM [Concomitant]

REACTIONS (8)
  - APNOEA [None]
  - BACK PAIN [None]
  - CONVULSION [None]
  - EYE ROLLING [None]
  - FOAMING AT MOUTH [None]
  - HEADACHE [None]
  - LOSS OF CONSCIOUSNESS [None]
  - STARING [None]
